FAERS Safety Report 5385940-1 (Version None)
Quarter: 2007Q3

REPORT INFORMATION
  Report Type: 
  Country: None (occurrence: None)
  Receive Date: 20070710
  Receipt Date: 20070627
  Transmission Date: 20080115
  Serious: Yes (Hospitalization)
  Sender: FDA-Public Use
  Company Number: GXKR2007GB05510

PATIENT
  Age: 73 Year
  Sex: Female
  Weight: 54 kg

DRUGS (7)
  1. METFORMIN (NGX) (METFORMIN) [Suspect]
     Indication: TYPE 2 DIABETES MELLITUS
     Dosage: 500 MG , TID, ORAL
     Route: 048
     Dates: end: 20070604
  2. COVERSYL (PERINDOPRIL ERBUMINE) [Suspect]
     Indication: BLOOD PRESSURE INCREASED
     Dosage: 4 MG, QD, ORAL
     Route: 048
     Dates: end: 20070604
  3. GLIPIZIDE [Suspect]
     Dosage: 10 MG, QD, ORAL
     Route: 048
     Dates: start: 20070605
  4. AMLODIPINE [Concomitant]
  5. ASPIRIN [Concomitant]
  6. OMEPRAZOLE [Concomitant]
  7. PRAVASTATIN [Concomitant]

REACTIONS (2)
  - LACTIC ACIDOSIS [None]
  - RENAL FAILURE ACUTE [None]
